FAERS Safety Report 17986524 (Version 2)
Quarter: 2020Q3

REPORT INFORMATION
  Report Type: Spontaneous
  Country: AU (occurrence: AU)
  Receive Date: 20200707
  Receipt Date: 20200807
  Transmission Date: 20201103
  Serious: Yes (Other)
  Sender: FDA-Public Use
  Company Number: AU-UCBSA-2020026136

PATIENT
  Age: 73 Year
  Sex: Male

DRUGS (3)
  1. LEVETIRACETAM. [Suspect]
     Active Substance: LEVETIRACETAM
     Indication: BRAIN INJURY
     Dosage: UNK
     Route: 042
     Dates: start: 20191212
  2. LEVETIRACETAM. [Suspect]
     Active Substance: LEVETIRACETAM
     Indication: OFF LABEL USE
  3. LEVETIRACETAM. [Suspect]
     Active Substance: LEVETIRACETAM
     Indication: SEIZURE PROPHYLAXIS

REACTIONS (3)
  - Urticaria [Recovering/Resolving]
  - Off label use [Unknown]
  - Hypotension [Unknown]

NARRATIVE: CASE EVENT DATE: 20191212
